FAERS Safety Report 6174958-7 (Version None)
Quarter: 2009Q2

REPORT INFORMATION
  Report Type: 
  Country: None (occurrence: None)
  Receive Date: 20090430
  Receipt Date: 20081023
  Transmission Date: 20091009
  Serious: No
  Sender: FDA-Public Use
  Company Number: US-ASTRAZENECA-2008UW23735

PATIENT
  Sex: Female

DRUGS (5)
  1. NEXIUM [Suspect]
     Indication: GASTROOESOPHAGEAL REFLUX DISEASE
     Route: 048
  2. NEXIUM [Suspect]
     Indication: DYSPHONIA
     Route: 048
  3. WATER PILL [Concomitant]
  4. DIABETES MEDICATION [Concomitant]
  5. DETROL [Concomitant]
     Dosage: AT BEDTIME

REACTIONS (1)
  - CONDITION AGGRAVATED [None]
